FAERS Safety Report 23569023 (Version 4)
Quarter: 2024Q3

REPORT INFORMATION
  Report Type: Spontaneous
  Country: US (occurrence: US)
  Receive Date: 20240227
  Receipt Date: 20240703
  Transmission Date: 20241016
  Serious: No
  Sender: AMGEN
  Company Number: US-AMGEN-USASP2024039403

PATIENT
  Age: 36 Year
  Sex: Female

DRUGS (7)
  1. OTEZLA [Suspect]
     Active Substance: APREMILAST
     Indication: Psoriasis
     Dosage: 10/20/30MG STARTER PACK
     Route: 048
     Dates: start: 20240202, end: 202402
  2. OTEZLA [Suspect]
     Active Substance: APREMILAST
     Dosage: 30 MILLIGRAM, BID
     Route: 048
     Dates: start: 202402, end: 202402
  3. OTEZLA [Suspect]
     Active Substance: APREMILAST
     Dosage: 30 MILLIGRAM, QD
     Route: 048
     Dates: start: 20240215, end: 202402
  4. OTEZLA [Suspect]
     Active Substance: APREMILAST
     Dosage: HALF DOSE (15 MILLIGRAM), TWICE DAILY (BID)
     Route: 048
     Dates: start: 20240223, end: 20240626
  5. NORETHINDRONE [Concomitant]
     Active Substance: NORETHINDRONE
     Dosage: UNK
     Route: 065
  6. CLOBETASOL [Concomitant]
     Active Substance: CLOBETASOL
     Dosage: UNK
     Route: 065
  7. CALCIPOTRIENE [Concomitant]
     Active Substance: CALCIPOTRIENE
     Dosage: UNK
     Route: 065

REACTIONS (6)
  - Diarrhoea [Recovered/Resolved]
  - Nausea [Recovered/Resolved]
  - Vomiting [Recovered/Resolved]
  - Wrong technique in product usage process [Unknown]
  - Product communication issue [Unknown]
  - Drug effect less than expected [Recovered/Resolved]

NARRATIVE: CASE EVENT DATE: 20240201
